FAERS Safety Report 23449042 (Version 1)
Quarter: 2024Q1

REPORT INFORMATION
  Report Type: Report from Study
  Country: US (occurrence: US)
  Receive Date: 20240128
  Receipt Date: 20240128
  Transmission Date: 20240410
  Serious: Yes (Other)
  Sender: FDA-Public Use
  Company Number: US-ABBVIE-5445627

PATIENT
  Sex: Female
  Weight: 73 kg

DRUGS (2)
  1. RINVOQ [Suspect]
     Active Substance: UPADACITINIB
     Indication: Colitis ulcerative
     Route: 048
  2. RINVOQ [Suspect]
     Active Substance: UPADACITINIB
     Indication: Colitis ulcerative
     Route: 048
     Dates: start: 202306

REACTIONS (16)
  - Osteitis [Not Recovered/Not Resolved]
  - Arthralgia [Not Recovered/Not Resolved]
  - Vision blurred [Not Recovered/Not Resolved]
  - Glossitis [Not Recovered/Not Resolved]
  - Lip erythema [Not Recovered/Not Resolved]
  - Inflammation [Not Recovered/Not Resolved]
  - Pruritus [Unknown]
  - Pain in extremity [Not Recovered/Not Resolved]
  - Lice infestation [Unknown]
  - Bone disorder [Unknown]
  - Chills [Unknown]
  - Skin exfoliation [Not Recovered/Not Resolved]
  - Peripheral swelling [Unknown]
  - Headache [Not Recovered/Not Resolved]
  - Back disorder [Unknown]
  - Arthritis [Unknown]

NARRATIVE: CASE EVENT DATE: 20230101
